FAERS Safety Report 6852373-8 (Version None)
Quarter: 2010Q3

REPORT INFORMATION
  Report Type: 
  Country: None (occurrence: None)
  Receive Date: 20100717
  Receipt Date: 20071116
  Transmission Date: 20110219
  Serious: No
  Sender: FDA-Public Use
  Company Number: US-PFIZER INC-2007096667

PATIENT
  Sex: Male
  Weight: 68 kg

DRUGS (11)
  1. CHANTIX [Suspect]
     Indication: SMOKING CESSATION THERAPY
     Dates: start: 20071101
  2. LIPITOR [Concomitant]
     Indication: BLOOD CHOLESTEROL INCREASED
  3. ZETIA [Concomitant]
     Indication: BLOOD CHOLESTEROL INCREASED
  4. OS-CAL D [Concomitant]
  5. ACETYLSALICYLIC ACID [Concomitant]
  6. COQ-10 ST [Concomitant]
  7. FISH OIL [Concomitant]
  8. VITAMIN C [Concomitant]
  9. VITAMIN E [Concomitant]
  10. GLUCOSAMINE [Concomitant]
  11. GRAPE SEED EXTRACT [Concomitant]

REACTIONS (2)
  - FATIGUE [None]
  - NAUSEA [None]
